FAERS Safety Report 5097947-2 (Version None)
Quarter: 2006Q3

REPORT INFORMATION
  Report Type: 
  Country: None (occurrence: None)
  Receive Date: 20060905
  Receipt Date: 20060905
  Transmission Date: 20061208
  Serious: Yes (Hospitalization)
  Sender: FDA-Public Use
  Company Number: None

PATIENT
  Sex: Male
  Weight: 68.4 kg

DRUGS (3)
  1. CYTARABINE [Suspect]
     Dosage: 3900 G
     Route: 042
  2. ETOPOSIDE [Suspect]
     Dosage: 366 MG
  3. G-CSF (FILGRASTIM AMGEN) [Suspect]
     Dosage: 2450 MCG  SEE IMAGE
     Route: 058

REACTIONS (4)
  - ESCHERICHIA INFECTION [None]
  - FATIGUE [None]
  - NAUSEA [None]
  - NEUTROPENIA [None]
